FAERS Safety Report 23316143 (Version 1)
Quarter: 2023Q4

REPORT INFORMATION
  Report Type: Other
  Country: US (occurrence: US)
  Receive Date: 20231219
  Receipt Date: 20231219
  Transmission Date: 20240110
  Serious: Yes (Hospitalization, Other)
  Sender: FDA-Public Use
  Company Number: US-HLS-202301894

PATIENT
  Age: 59 Year
  Sex: Female

DRUGS (6)
  1. CLOZAPINE [Suspect]
     Active Substance: CLOZAPINE
     Indication: Product used for unknown indication
     Dosage: REDUCED TO 25 MG IN THE MORNING AND 50 MG IN THE EVENING
     Route: 065
  2. CLOZAPINE [Suspect]
     Active Substance: CLOZAPINE
     Indication: Product used for unknown indication
     Dosage: 50 MG TWICE DAILY
     Route: 065
  3. CLOZAPINE [Suspect]
     Active Substance: CLOZAPINE
     Indication: Product used for unknown indication
     Dosage: 75 MG IN THE MORNING AND 125 MG EVENING
     Route: 065
  4. VALPROATE [Concomitant]
     Active Substance: VALPROIC ACID
     Indication: Product used for unknown indication
     Route: 065
  5. LITHIUM [Concomitant]
     Active Substance: LITHIUM
     Indication: Product used for unknown indication
     Dosage: DOSE REDUCE
     Route: 065
  6. LITHIUM [Concomitant]
     Active Substance: LITHIUM
     Indication: Product used for unknown indication
     Route: 065

REACTIONS (8)
  - Agitation [Recovering/Resolving]
  - Depression [Unknown]
  - Irritability [Recovering/Resolving]
  - Myoclonus [Unknown]
  - Toxicity to various agents [Unknown]
  - Pneumonia [Unknown]
  - Suicidal ideation [Unknown]
  - Urinary incontinence [Unknown]
